FAERS Safety Report 5212685-0 (Version None)
Quarter: 2007Q1

REPORT INFORMATION
  Report Type: 
  Country: None (occurrence: None)
  Receive Date: 20061115
  Receipt Date: 20060710
  Transmission Date: 20070707
  Serious: No
  Sender: FDA-Public Use
  Company Number: 200612853BWH

PATIENT
  Age: 78 Year
  Sex: Male
  Weight: 68.9467 kg

DRUGS (11)
  1. NEXAVAR [Suspect]
     Indication: RENAL CELL CARCINOMA STAGE UNSPECIFIED
     Dosage: SEE IMAGE
     Route: 048
     Dates: start: 20060401, end: 20060101
  2. NEXAVAR [Suspect]
     Indication: RENAL CELL CARCINOMA STAGE UNSPECIFIED
     Dosage: SEE IMAGE
     Route: 048
     Dates: start: 20060101
  3. NEXAVAR [Suspect]
     Indication: RENAL CELL CARCINOMA STAGE UNSPECIFIED
     Dosage: SEE IMAGE
     Route: 048
     Dates: start: 20060619
  4. NOVOLOG [Concomitant]
  5. LANTUS [Concomitant]
  6. CARDURA [Concomitant]
  7. TOPROL-XL [Concomitant]
  8. LESCOL XL [Concomitant]
  9. NORVASC [Concomitant]
  10. ASPIRIN [Concomitant]
  11. BENICAR [Concomitant]

REACTIONS (7)
  - BLISTER [None]
  - DIZZINESS [None]
  - GLOSSODYNIA [None]
  - HYPERTENSION [None]
  - PAIN IN EXTREMITY [None]
  - PHARYNGOLARYNGEAL PAIN [None]
  - RASH [None]
